FAERS Safety Report 13088373 (Version 2)
Quarter: 2017Q1

REPORT INFORMATION
  Report Type: Report from Study
  Country: CA (occurrence: CA)
  Receive Date: 20170105
  Receipt Date: 20170202
  Transmission Date: 20170428
  Serious: Yes (Hospitalization, Other)
  Sender: FDA-Public Use
  Company Number: CA-JNJFOC-20161200740

PATIENT
  Age: 89 Year
  Sex: Female

DRUGS (4)
  1. STELARA [Suspect]
     Active Substance: USTEKINUMAB
     Indication: CROHN^S DISEASE
     Route: 058
     Dates: start: 20161130
  2. STELARA [Suspect]
     Active Substance: USTEKINUMAB
     Indication: CROHN^S DISEASE
     Route: 058
     Dates: start: 20161006
  3. STELARA [Suspect]
     Active Substance: USTEKINUMAB
     Indication: CROHN^S DISEASE
     Route: 058
  4. STELARA [Suspect]
     Active Substance: USTEKINUMAB
     Indication: CROHN^S DISEASE
     Dosage: WEEK 0/1 180MG,WEEK 2 90MG, THEN 90 MG EVERY WEEK 8
     Route: 058
     Dates: start: 20160811

REACTIONS (11)
  - Confusional state [Recovering/Resolving]
  - Back pain [Unknown]
  - Product use issue [Unknown]
  - Fall [Unknown]
  - Adverse event [Unknown]
  - Off label use [Unknown]
  - Headache [Recovering/Resolving]
  - Transfusion [Unknown]
  - Loss of consciousness [Unknown]
  - Body temperature decreased [Unknown]
  - Muscular weakness [Unknown]

NARRATIVE: CASE EVENT DATE: 20160811
